FAERS Safety Report 6503003-6 (Version None)
Quarter: 2009Q4

REPORT INFORMATION
  Report Type: 
  Country: None (occurrence: None)
  Receive Date: 20091217
  Receipt Date: 20091204
  Transmission Date: 20100525
  Serious: Yes (Life-Threatening, Hospitalization, Other)
  Sender: FDA-Public Use
  Company Number: US-ELI_LILLY_AND_COMPANY-US200911006573

PATIENT
  Sex: Female

DRUGS (5)
  1. FORTEO [Suspect]
     Indication: OSTEOPOROSIS
     Dosage: 20 UG, DAILY (1/D)
     Dates: start: 20090101
  2. PREDNISONE [Concomitant]
     Indication: DYSPNOEA
     Dosage: 40 MG, UNK
  3. LASIX [Concomitant]
     Dosage: 40 MG, DAILY (1/D)
  4. DIURETICS [Concomitant]
  5. RESTORIL [Concomitant]
     Dosage: UNK, OTHER

REACTIONS (8)
  - ASTHENIA [None]
  - CARBON DIOXIDE INCREASED [None]
  - CONFUSIONAL STATE [None]
  - DYSPNOEA [None]
  - FALL [None]
  - INAPPROPRIATE AFFECT [None]
  - RESPIRATORY DISTRESS [None]
  - RESPIRATORY FAILURE [None]
